FAERS Safety Report 6646525-X (Version None)
Quarter: 2010Q1

REPORT INFORMATION
  Report Type: 
  Country: None (occurrence: None)
  Receive Date: 20100317
  Receipt Date: 20100303
  Transmission Date: 20100710
  Serious: Yes (Hospitalization)
  Sender: FDA-Public Use
  Company Number: 2010AP000496

PATIENT
  Age: 50 Year
  Sex: Male

DRUGS (5)
  1. ALLOPURINOL [Suspect]
     Indication: GOUT
  2. LANSOPRAZOLE [Suspect]
  3. COLCHICINE [Suspect]
     Indication: GOUT
  4. PENICILLIN NOS [Suspect]
     Indication: PROPHYLAXIS
  5. MELPHALAN HYDROCHLORIDE [Concomitant]

REACTIONS (2)
  - BLOOD CREATININE INCREASED [None]
  - GOUT [None]
